FAERS Safety Report 7130707-7 (Version None)
Quarter: 2010Q4

REPORT INFORMATION
  Report Type: 
  Country: None (occurrence: None)
  Receive Date: 20101201
  Receipt Date: 20101124
  Transmission Date: 20110411
  Serious: Yes (Death, Hospitalization)
  Sender: FDA-Public Use
  Company Number: JP-ROCHE-593388

PATIENT
  Sex: Male
  Weight: 72 kg

DRUGS (4)
  1. PEGASYS [Suspect]
     Indication: HEPATITIS C
     Route: 058
     Dates: start: 20080508, end: 20081002
  2. COPEGUS [Suspect]
     Indication: HEPATITIS C
     Route: 048
     Dates: start: 20080513, end: 20081009
  3. URSO [Concomitant]
     Route: 048
     Dates: start: 20070104
  4. BASEN [Concomitant]
     Route: 048
     Dates: start: 20080717

REACTIONS (1)
  - INTERSTITIAL LUNG DISEASE [None]
